FAERS Safety Report 11291018 (Version 1)
Quarter: 2015Q3

REPORT INFORMATION
  Report Type: Spontaneous
  Country: US (occurrence: US)
  Receive Date: 20150722
  Receipt Date: 20150722
  Transmission Date: 20151125
  Serious: Yes (Hospitalization)
  Sender: FDA-Public Use
  Company Number: US-UNITED THERAPEUTICS-UNT-2015-005980

PATIENT
  Age: 58 Year
  Sex: Female
  Weight: 63.49 kg

DRUGS (5)
  1. REVATIO [Concomitant]
     Active Substance: SILDENAFIL CITRATE
     Indication: PRODUCT USED FOR UNKNOWN INDICATION
  2. REMODULIN [Suspect]
     Active Substance: TREPROSTINIL
     Dosage: 0.124 ?G/KG, CONTINUING
     Route: 041
     Dates: start: 20120710
  3. REMODULIN [Suspect]
     Active Substance: TREPROSTINIL
     Dosage: 0.124 ?G/KG, CONTINUING
     Route: 041
     Dates: start: 20120726
  4. LETAIRIS [Concomitant]
     Active Substance: AMBRISENTAN
     Indication: PRODUCT USED FOR UNKNOWN INDICATION
  5. REMODULIN [Suspect]
     Active Substance: TREPROSTINIL
     Indication: PULMONARY HYPERTENSION
     Dosage: 0.124 ?G/KG, CONTINUING
     Route: 041
     Dates: start: 20120427

REACTIONS (2)
  - Drug dose omission [Unknown]
  - Device dislocation [Unknown]

NARRATIVE: CASE EVENT DATE: 20150516
